FAERS Safety Report 6195820-X (Version None)
Quarter: 2009Q2

REPORT INFORMATION
  Report Type: 
  Country: None (occurrence: None)
  Receive Date: 20090515
  Receipt Date: 20090428
  Transmission Date: 20091009
  Serious: Yes (Other)
  Sender: FDA-Public Use
  Company Number: B0573209A

PATIENT
  Sex: 0

DRUGS (7)
  1. MELPHALAN (FORMULATION UNKNOWN) (GENERIC) (MELPHALAN) [Suspect]
     Indication: NON-HODGKIN'S LYMPHOMA
  2. CARMUSTINE [Suspect]
     Indication: NON-HODGKIN'S LYMPHOMA
  3. ETOPOSIDE [Suspect]
     Indication: NON-HODGKIN'S LYMPHOMA
  4. CYTARABINE [Suspect]
     Indication: NON-HODGKIN'S LYMPHOMA
  5. RITUXAN [Suspect]
     Indication: NON-HODGKIN'S LYMPHOMA
  6. IBRITUMOMAB TIUXETAN (FORMULATION UNKNOWN) (IBRITUMOMAB TIUXETAN) [Suspect]
     Indication: NON-HODGKIN'S LYMPHOMA
  7. GRANULOCYTE COL.STIM.FACT [Concomitant]

REACTIONS (3)
  - CATHETER RELATED INFECTION [None]
  - PULMONARY EMBOLISM [None]
  - SEPTIC EMBOLUS [None]
